FAERS Safety Report 23876641 (Version 2)
Quarter: 2024Q3

REPORT INFORMATION
  Report Type: Spontaneous
  Country: IT (occurrence: IT)
  Receive Date: 20240521
  Receipt Date: 20240807
  Transmission Date: 20241016
  Serious: Yes (Hospitalization, Other)
  Sender: CIPLA
  Company Number: IT-MINISAL02-983936

PATIENT

DRUGS (1)
  1. RIVAROXABAN [Suspect]
     Active Substance: RIVAROXABAN
     Indication: Atrial fibrillation
     Dosage: 20 MILLIGRAM, QD (20 MG 1 TABLET DAILY) (FILM COATED TABLET)
     Route: 048
     Dates: start: 20240423, end: 20240428

REACTIONS (4)
  - Loss of consciousness [Recovering/Resolving]
  - Gastrointestinal haemorrhage [Recovering/Resolving]
  - Malaise [Recovering/Resolving]
  - Haematemesis [Recovering/Resolving]

NARRATIVE: CASE EVENT DATE: 20240428
